FAERS Safety Report 5669783-7 (Version None)
Quarter: 2008Q1

REPORT INFORMATION
  Report Type: 
  Country: None (occurrence: None)
  Receive Date: 20080313
  Receipt Date: 20080313
  Transmission Date: 20080703
  Serious: Yes (Other)
  Sender: FDA-Public Use
  Company Number: None

PATIENT
  Age: 67 Year
  Sex: Female
  Weight: 70.3075 kg

DRUGS (1)
  1. AMLODIPINE [Suspect]
     Indication: HYPERTENSION
     Dosage: 10 MG ONCE DAILY PO
     Route: 048
     Dates: start: 20070628, end: 20071206

REACTIONS (3)
  - DYSPEPSIA [None]
  - HEADACHE [None]
  - PAIN IN EXTREMITY [None]
